FAERS Safety Report 4557861-5 (Version None)
Quarter: 2005Q1

REPORT INFORMATION
  Report Type: 
  Country: None (occurrence: None)
  Receive Date: 20050103
  Receipt Date: 20041021
  Transmission Date: 20050727
  Serious: Yes (Other)
  Sender: FDA-Public Use
  Company Number: 2004UW19348

PATIENT
  Age: 60 Year
  Sex: Female
  Weight: 83.9154 kg

DRUGS (7)
  1. CRESTOR [Suspect]
     Indication: HYPERLIPIDAEMIA
     Dosage: 40 MG DAILY PO
     Route: 048
     Dates: start: 20030901, end: 20040901
  2. TOPROL-XL [Concomitant]
  3. LANOXIN [Concomitant]
  4. ACTOS [Concomitant]
  5. GLUCOTROL [Concomitant]
  6. LOTENSIN [Concomitant]
  7. NPH INSULIN [Concomitant]

REACTIONS (1)
  - LIPOMA [None]
